FAERS Safety Report 15958564 (Version 5)
Quarter: 2024Q1

REPORT INFORMATION
  Report Type: Spontaneous
  Country: US (occurrence: US)
  Receive Date: 20190213
  Receipt Date: 20240214
  Transmission Date: 20240410
  Serious: No
  Sender: FDA-Public Use
  Company Number: US-PURDUE-USA-2018-0144986

PATIENT
  Sex: Male
  Weight: 131.52 kg

DRUGS (6)
  1. BUTRANS [Interacting]
     Active Substance: BUPRENORPHINE
     Indication: Pain
     Dosage: 15 MCG/HR, WEEKLY
     Route: 062
     Dates: start: 2018
  2. BUTRANS [Interacting]
     Active Substance: BUPRENORPHINE
     Indication: Migraine
     Dosage: 15 MCG/HR, WEEKLY
     Route: 062
  3. BUTRANS [Interacting]
     Active Substance: BUPRENORPHINE
     Dosage: 20 MCG/HR
     Route: 062
  4. BUTRANS [Interacting]
     Active Substance: BUPRENORPHINE
     Dosage: 20 MCG/HR, WEEKLY
     Route: 062
  5. BUTRANS [Interacting]
     Active Substance: BUPRENORPHINE
     Dosage: 20 MCG/HR
     Route: 062
  6. PIROXICAM [Interacting]
     Active Substance: PIROXICAM
     Indication: Depression
     Dosage: UNKNOWN
     Route: 065

REACTIONS (13)
  - Dyskinesia [Recovered/Resolved]
  - Sneezing [Recovered/Resolved]
  - Rhinorrhoea [Recovered/Resolved]
  - Drug interaction [Unknown]
  - Therapeutic response unexpected [Unknown]
  - Therapeutic product effect decreased [Unknown]
  - Inappropriate schedule of product administration [Unknown]
  - Drug withdrawal syndrome [Unknown]
  - Headache [Recovered/Resolved]
  - Drug ineffective [Unknown]
  - Product adhesion issue [Unknown]
  - Wrong technique in product usage process [Unknown]
  - Product use in unapproved indication [Unknown]

NARRATIVE: CASE EVENT DATE: 20180101
